FAERS Safety Report 9896005 (Version 2)
Quarter: 2014Q1

REPORT INFORMATION
  Report Type: Spontaneous
  Country: US (occurrence: US)
  Receive Date: 20140213
  Receipt Date: 20140213
  Transmission Date: 20141002
  Serious: No
  Sender: FDA-Public Use
  Company Number: US-BRISTOL-MYERS SQUIBB COMPANY-18787440

PATIENT
  Age: 47 Year
  Sex: Male

DRUGS (6)
  1. ORENCIA FOR INJ 250 MG/VIAL [Suspect]
     Indication: RHEUMATOID ARTHRITIS
     Dosage: 19MAY11-11OCT12,26FEB13-RSTRTD. 0-2-4WKS THEN EVERY4 WK.
     Route: 042
     Dates: start: 20110519
  2. PRILOSEC [Concomitant]
     Dosage: CAP
     Route: 048
  3. RHEUMATREX [Concomitant]
     Dosage: TABS
     Route: 048
  4. PERCOCET TABS 7.5 MG/325 MG [Concomitant]
     Dosage: 1DF=1-2 TABS NIGHTLY
     Route: 048
  5. LODINE [Concomitant]
     Route: 048
  6. ADDERALL XR [Concomitant]
     Route: 048

REACTIONS (3)
  - Arthropathy [Unknown]
  - Intervertebral disc protrusion [Unknown]
  - Exostosis [Unknown]
